FAERS Safety Report 9773106 (Version 1)
Quarter: 2013Q4

REPORT INFORMATION
  Report Type: Spontaneous
  Country: JP (occurrence: JP)
  Receive Date: 20131219
  Receipt Date: 20131219
  Transmission Date: 20140711
  Serious: Yes (Other)
  Sender: FDA-Public Use
  Company Number: JP-BANPHARM-20131951

PATIENT
  Age: 2 Year
  Sex: Female

DRUGS (1)
  1. VALPROIC ACID UNKNOWN PRODUCT [Suspect]
     Indication: EPILEPSY
     Dosage: 11 MG/KG, QD,
     Route: 048

REACTIONS (1)
  - Status epilepticus [Recovered/Resolved]
